FAERS Safety Report 17437442 (Version 1)
Quarter: 2020Q1

REPORT INFORMATION
  Report Type: Spontaneous
  Country: US (occurrence: US)
  Receive Date: 20200219
  Receipt Date: 20200219
  Transmission Date: 20200409
  Serious: Yes (Hospitalization, Other)
  Sender: FDA-Public Use
  Company Number: US-NOVOPROD-712979

PATIENT
  Sex: Male

DRUGS (3)
  1. LEVEMIR [Suspect]
     Active Substance: INSULIN DETEMIR
     Indication: TYPE 2 DIABETES MELLITUS
     Dosage: TWICE DAILY
     Route: 058
     Dates: start: 2011
  2. NOVOLOG [Suspect]
     Active Substance: INSULIN ASPART
     Indication: TYPE 2 DIABETES MELLITUS
     Dosage: SLIDING SCALE BASED ON CARBOHYDRATE INTAKE
     Route: 058
     Dates: start: 2011
  3. NOVOLOG [Suspect]
     Active Substance: INSULIN ASPART
     Dosage: DOSE INCREASED
     Route: 058
     Dates: start: 2011

REACTIONS (5)
  - Cerebrovascular accident [Recovered/Resolved with Sequelae]
  - Sleep apnoea syndrome [Unknown]
  - Insulin resistance [Not Recovered/Not Resolved]
  - Cerebrovascular accident [Recovered/Resolved with Sequelae]
  - Atrial fibrillation [Unknown]

NARRATIVE: CASE EVENT DATE: 2013
